FAERS Safety Report 7750159-3 (Version None)
Quarter: 2011Q3

REPORT INFORMATION
  Report Type: 
  Country: None (occurrence: None)
  Receive Date: 20110914
  Receipt Date: 20110914
  Transmission Date: 20111222
  Serious: Yes (Hospitalization)
  Sender: FDA-Public Use
  Company Number: None

PATIENT
  Age: 51 Year
  Sex: Female
  Weight: 110 kg

DRUGS (1)
  1. CEFOTETAN [Suspect]
     Indication: DEVICE RELATED INFECTION
     Dosage: 2GM
     Route: 042
     Dates: start: 20110826, end: 20110829

REACTIONS (7)
  - ARTHRITIS BACTERIAL [None]
  - DIZZINESS [None]
  - HAEMOGLOBIN DECREASED [None]
  - DYSPNOEA [None]
  - GASTROINTESTINAL HAEMORRHAGE [None]
  - ANAEMIA HAEMOLYTIC AUTOIMMUNE [None]
  - AFFECT LABILITY [None]
